FAERS Safety Report 9655650 (Version 1)
Quarter: 2013Q4

REPORT INFORMATION
  Report Type: Other
  Country: TR (occurrence: TR)
  Receive Date: 20131030
  Receipt Date: 20131030
  Transmission Date: 20140711
  Serious: Yes (Hospitalization, Other)
  Sender: FDA-Public Use
  Company Number: TR-ACTELION-A-CH2013-90413

PATIENT
  Age: 25 Year
  Sex: Female

DRUGS (7)
  1. TRACLEER [Suspect]
     Indication: PULMONARY ARTERIAL HYPERTENSION
     Dosage: 125 MG, OD
     Route: 048
  2. NITRIC OXIDE [Concomitant]
  3. EPINEPHRINE [Concomitant]
  4. NORADRENALINE [Concomitant]
  5. DOBUTAMINE [Concomitant]
  6. SILDENAFIL [Concomitant]
     Dosage: 75 MG, OD
  7. SILDENAFIL [Concomitant]
     Dosage: 25 MG, OD

REACTIONS (2)
  - Pneumonia [Unknown]
  - Sepsis [Unknown]
